FAERS Safety Report 6906718-0 (Version None)
Quarter: 2010Q3

REPORT INFORMATION
  Report Type: 
  Country: None (occurrence: None)
  Receive Date: 20100804
  Receipt Date: 20100727
  Transmission Date: 20110219
  Serious: Yes (Other)
  Sender: FDA-Public Use
  Company Number: CA-BAYER-201016073NA

PATIENT
  Age: 45 Year
  Sex: Male

DRUGS (6)
  1. LEVITRA [Suspect]
     Indication: ERECTILE DYSFUNCTION
     Dosage: 2 DOSES OF LEVITRA WAS TAKEN ON THE SAME DATE
     Route: 048
  2. ASPIRIN [Concomitant]
  3. SIMVASTATIN [Concomitant]
     Route: 065
  4. AVALIDE [Concomitant]
     Dosage: 300.12.5MG
     Route: 065
  5. GLYBURIDE [Concomitant]
     Route: 065
  6. METFORMIN HCL [Concomitant]
     Route: 065

REACTIONS (4)
  - EYE DISCHARGE [None]
  - RETINAL VASCULAR THROMBOSIS [None]
  - VISION BLURRED [None]
  - VISUAL IMPAIRMENT [None]
